FAERS Safety Report 17370659 (Version 4)
Quarter: 2020Q3

REPORT INFORMATION
  Report Type: Spontaneous
  Country: US (occurrence: US)
  Receive Date: 20200205
  Receipt Date: 20200730
  Transmission Date: 20201102
  Serious: Yes (Hospitalization)
  Sender: FDA-Public Use
  Company Number: US-BIOGEN-2020BI00832692

PATIENT
  Age: 19 Year
  Sex: Male

DRUGS (1)
  1. SPINRAZA [Suspect]
     Active Substance: NUSINERSEN
     Indication: SPINAL MUSCULAR ATROPHY
     Route: 037
     Dates: start: 20171013

REACTIONS (11)
  - Mobility decreased [Recovered/Resolved]
  - Nausea [Recovered/Resolved]
  - Cerebrospinal fluid leakage [Unknown]
  - Chest pain [Unknown]
  - Back pain [Recovered/Resolved]
  - Tremor [Unknown]
  - Myoglobin blood increased [Unknown]
  - Asthenia [Unknown]
  - Post lumbar puncture syndrome [Recovered/Resolved]
  - Blood creatine phosphokinase increased [Unknown]
  - Pain [Recovered/Resolved]

NARRATIVE: CASE EVENT DATE: 20200123
